FAERS Safety Report 4799058-X (Version None)
Quarter: 2005Q4

REPORT INFORMATION
  Report Type: 
  Country: None (occurrence: None)
  Receive Date: 20051013
  Receipt Date: 20050930
  Transmission Date: 20060501
  Serious: Yes (Other)
  Sender: FDA-Public Use
  Company Number: 200511954BWH

PATIENT
  Sex: Female

DRUGS (1)
  1. CIPRO [Suspect]
     Dates: start: 20050101

REACTIONS (1)
  - RECTAL HAEMORRHAGE [None]
